FAERS Safety Report 7706685-6 (Version None)
Quarter: 2011Q3

REPORT INFORMATION
  Report Type: 
  Country: None (occurrence: None)
  Receive Date: 20110824
  Receipt Date: 20110816
  Transmission Date: 20111222
  Serious: Yes (Life-Threatening, Hospitalization)
  Sender: FDA-Public Use
  Company Number: VN-JNJFOC-20110809667

PATIENT

DRUGS (1)
  1. OFLOXACIN [Suspect]
     Indication: TYPHOID FEVER
     Route: 048

REACTIONS (1)
  - ADVERSE EVENT [None]
